FAERS Safety Report 9737135 (Version 1)
Quarter: 2013Q4

REPORT INFORMATION
  Report Type: Report from Study
  Country: US (occurrence: US)
  Receive Date: 20131206
  Receipt Date: 20131206
  Transmission Date: 20140711
  Serious: Yes (Other)
  Sender: FDA-Public Use
  Company Number: US-ROCHE-1308767

PATIENT
  Age: 62 Year
  Sex: Male
  Weight: 86.26 kg

DRUGS (12)
  1. AVASTIN [Suspect]
     Indication: LUNG NEOPLASM MALIGNANT
     Dosage: DOSE REDUCED
     Route: 065
     Dates: start: 20120908
  2. AVASTIN [Suspect]
     Route: 065
     Dates: start: 200104, end: 200108
  3. TARCEVA [Suspect]
     Indication: LUNG NEOPLASM MALIGNANT
     Route: 065
  4. PACLITAXEL [Concomitant]
     Route: 065
     Dates: start: 200104, end: 200108
  5. CARBOPLATIN [Concomitant]
     Route: 065
     Dates: start: 200104, end: 200108
  6. PEMETREXED [Concomitant]
     Dosage: DOSE REDUCED
     Route: 065
     Dates: start: 20120908
  7. CLONIDINE [Concomitant]
  8. TAXOTERE [Concomitant]
     Indication: LUNG ADENOCARCINOMA
  9. CISPLATIN [Concomitant]
  10. GABAPENTIN [Concomitant]
     Indication: NEUROPATHY PERIPHERAL
  11. FOLIC ACID [Concomitant]
  12. VITAMIN B12 [Concomitant]

REACTIONS (24)
  - Renal failure [Unknown]
  - Fatigue [Unknown]
  - Epistaxis [Unknown]
  - Metastases to central nervous system [Unknown]
  - Vision blurred [Unknown]
  - Tinnitus [Unknown]
  - Palpitations [Unknown]
  - Anxiety [Unknown]
  - Dry skin [Unknown]
  - Diabetes mellitus [Unknown]
  - Neuropathy peripheral [Unknown]
  - Anaemia macrocytic [Unknown]
  - Urine flow decreased [Unknown]
  - Hyperlipidaemia [Unknown]
  - Sleep apnoea syndrome [Unknown]
  - Osteoarthritis [Unknown]
  - Arteriosclerosis [Unknown]
  - Hypertension [Unknown]
  - Weight decreased [Unknown]
  - Pain [Unknown]
  - Neurological symptom [Unknown]
  - Disease progression [Unknown]
  - Atrial fibrillation [Unknown]
  - Umbilical hernia [Unknown]
